FAERS Safety Report 7064103-8 (Version None)
Quarter: 2010Q4

REPORT INFORMATION
  Report Type: 
  Country: None (occurrence: None)
  Receive Date: 20101027
  Receipt Date: 20101018
  Transmission Date: 20110411
  Serious: Yes (Hospitalization)
  Sender: FDA-Public Use
  Company Number: TR-ELI_LILLY_AND_COMPANY-TR201008000797

PATIENT
  Sex: Female
  Weight: 3.7 kg

DRUGS (5)
  1. HUMULIN R [Suspect]
     Indication: GESTATIONAL DIABETES
     Route: 064
  2. HUMULIN R [Suspect]
     Dosage: 10 IU, OTHER (AT NOON)
     Route: 064
  3. HUMULIN R [Suspect]
     Dosage: 10 IU, EACH EVENING
     Route: 064
  4. HUMULIN N [Suspect]
     Indication: GESTATIONAL DIABETES
     Dosage: 10 U, DAILY (1/D) AT NIGHT
     Route: 064
  5. NIDILAT [Concomitant]
     Indication: PROPHYLAXIS
     Route: 064

REACTIONS (3)
  - BLOOD GLUCOSE DECREASED [None]
  - DRUG EXPOSURE DURING PREGNANCY [None]
  - RESPIRATORY DISORDER NEONATAL [None]
